FAERS Safety Report 7384406-7 (Version None)
Quarter: 2011Q1

REPORT INFORMATION
  Report Type: 
  Country: None (occurrence: None)
  Receive Date: 20110330
  Receipt Date: 20110322
  Transmission Date: 20110831
  Serious: Yes (Other)
  Sender: FDA-Public Use
  Company Number: US-AMGEN-USASP2011015614

PATIENT
  Age: 58 Year
  Sex: Female

DRUGS (3)
  1. DOXORUBICIN [Concomitant]
  2. NEULASTA [Suspect]
     Indication: CHEMOTHERAPY
     Dates: start: 20110314
  3. CYCLOPHOSPHAMIDE [Concomitant]

REACTIONS (1)
  - NEUTROPHIL COUNT DECREASED [None]
